FAERS Safety Report 17560335 (Version 2)
Quarter: 2020Q2

REPORT INFORMATION
  Report Type: Spontaneous
  Country: US (occurrence: US)
  Receive Date: 20200319
  Receipt Date: 20200414
  Transmission Date: 20200713
  Serious: Yes (Other)
  Sender: FDA-Public Use
  Company Number: US-BAYER-2020-047166

PATIENT
  Age: 34 Year
  Sex: Female
  Weight: 99.8 kg

DRUGS (2)
  1. MIRENA [Suspect]
     Active Substance: LEVONORGESTREL
     Indication: CONTRACEPTION
     Dosage: 20 ?G PER DAY,COUNTINUOUSLY
     Route: 015
     Dates: start: 20191217, end: 20200313
  2. BETADINE [Concomitant]
     Active Substance: POVIDONE-IODINE

REACTIONS (1)
  - Device dislocation [Recovered/Resolved]
